FAERS Safety Report 8455962-2 (Version None)
Quarter: 2012Q2

REPORT INFORMATION
  Report Type: 
  Country: None (occurrence: None)
  Receive Date: 20120621
  Receipt Date: 20120614
  Transmission Date: 20120825
  Serious: Yes (Life-Threatening, Hospitalization, Other)
  Sender: FDA-Public Use
  Company Number: US-BAYER-2012-005384

PATIENT
  Age: 30 Year
  Sex: Female
  Weight: 63.946 kg

DRUGS (7)
  1. ZANTAC [Concomitant]
     Dosage: DAILY
     Dates: start: 20070501
  2. YAZ [Suspect]
     Indication: CONTRACEPTION
     Dosage: UNK
     Dates: start: 20030101, end: 20101101
  3. DROSPIRENONE AND ETHINYL ESTRADIOL [Suspect]
     Indication: CONTRACEPTION
     Dosage: UNK
     Dates: start: 20030101, end: 20101101
  4. PRILOSEC [Concomitant]
     Dosage: EACH MORNING
     Dates: start: 20090210
  5. YASMIN [Suspect]
     Indication: CONTRACEPTION
     Dosage: UNK
     Route: 048
     Dates: start: 20030101, end: 20101101
  6. ONE-A-DAY [Concomitant]
     Dosage: ONE PILL DAILY
     Dates: start: 20060101, end: 20090101
  7. PROTONIX [Concomitant]
     Indication: GASTRITIS
     Dosage: UNK
     Dates: start: 20070501

REACTIONS (11)
  - ASTHENIA [None]
  - POST CHOLECYSTECTOMY SYNDROME [None]
  - FATIGUE [None]
  - GENERAL PHYSICAL HEALTH DETERIORATION [None]
  - CHOLELITHIASIS [None]
  - GALLBLADDER NON-FUNCTIONING [None]
  - ANXIETY [None]
  - ORGAN FAILURE [None]
  - INJURY [None]
  - PAIN [None]
  - ANHEDONIA [None]
